FAERS Safety Report 6480238-2 (Version None)
Quarter: 2009Q4

REPORT INFORMATION
  Report Type: 
  Country: None (occurrence: None)
  Receive Date: 20091208
  Receipt Date: 20091130
  Transmission Date: 20100525
  Serious: Yes (Hospitalization)
  Sender: FDA-Public Use
  Company Number: JP-ASTRAZENECA-2009SE12856

PATIENT
  Age: 10987 Day
  Sex: Male
  Weight: 80 kg

DRUGS (1)
  1. TENORMIN [Suspect]
     Indication: HYPERTENSION
     Route: 048

REACTIONS (3)
  - HYPOTENSION [None]
  - OVERDOSE [None]
  - SINUS BRADYCARDIA [None]
